FAERS Safety Report 8221434-3 (Version None)
Quarter: 2012Q1

REPORT INFORMATION
  Report Type: 
  Country: None (occurrence: None)
  Receive Date: 20120320
  Receipt Date: 20120316
  Transmission Date: 20120608
  Serious: No
  Sender: FDA-Public Use
  Company Number: US-PFIZER INC-2011278536

PATIENT
  Sex: Male

DRUGS (3)
  1. LIPITOR [Suspect]
     Indication: BLOOD CHOLESTEROL INCREASED
     Dosage: 10 MG, 2X/DAY
     Dates: start: 19990101
  2. LIPITOR [Suspect]
     Dosage: 20 MG, 1X/DAY
  3. PLAVIX [Concomitant]
     Dosage: UNK

REACTIONS (2)
  - NAUSEA [None]
  - MALAISE [None]
